FAERS Safety Report 7389529-4 (Version None)
Quarter: 2011Q2

REPORT INFORMATION
  Report Type: 
  Country: None (occurrence: None)
  Receive Date: 20110401
  Receipt Date: 20110322
  Transmission Date: 20111010
  Serious: Yes (Hospitalization)
  Sender: FDA-Public Use
  Company Number: PHFR2011GB02135

PATIENT
  Age: 43 Year
  Sex: Male

DRUGS (1)
  1. CLOZAPINE [Suspect]
     Indication: SCHIZOPHRENIA
     Dosage: UNK
     Dates: start: 20110101, end: 20110222

REACTIONS (5)
  - CARDIAC FAILURE [None]
  - MYOCARDITIS [None]
  - TACHYCARDIA [None]
  - PYREXIA [None]
  - LOWER RESPIRATORY TRACT INFECTION [None]
